FAERS Safety Report 7493283-5 (Version None)
Quarter: 2011Q2

REPORT INFORMATION
  Report Type: 
  Country: None (occurrence: None)
  Receive Date: 20110520
  Receipt Date: 20090319
  Transmission Date: 20111010
  Serious: Yes (Death, Hospitalization, Other)
  Sender: FDA-Public Use
  Company Number: US-BAYER-200915963NA

PATIENT
  Age: 75 Year
  Sex: Female
  Weight: 84 kg

DRUGS (19)
  1. ACCUPRIL [Concomitant]
  2. NIFEREX [Concomitant]
  3. LOTREL [Concomitant]
     Dosage: 5/20 MG
     Route: 048
     Dates: start: 20050101
  4. VANCOMYCIN [Concomitant]
     Dosage: 1 G, UNK
     Route: 042
  5. HEPARIN [Concomitant]
  6. ENALAPRIL MALEATE [Concomitant]
  7. LISINOPRIL [Concomitant]
  8. ATENOLOL [Concomitant]
     Dosage: 50 MG, UNK
     Route: 048
  9. DEXMEDETOMIDINE [Concomitant]
  10. HYDROCHLOROTHIAZIDE [Concomitant]
  11. ETOMIDATE [Concomitant]
     Dosage: UNK
     Dates: start: 20060501
  12. DOBUTAMINE HYDROCHLORIDE [Concomitant]
  13. LASIX [Concomitant]
     Dosage: 80 MG, UNK
     Route: 048
  14. VERSED [Concomitant]
  15. TRASYLOL [Suspect]
     Indication: MITRAL VALVE REPAIR
     Dosage: UNK
     Dates: start: 20060501, end: 20060501
  16. BUMEX [Concomitant]
  17. POTASSIUM [Concomitant]
     Dosage: 20 MEQ
     Route: 048
  18. ACETYLSALICYLIC ACID SRT [Concomitant]
     Dosage: 81 MG, UNK
  19. CEFUROXIME [Concomitant]

REACTIONS (12)
  - RENAL FAILURE [None]
  - ANHEDONIA [None]
  - ADVERSE EVENT [None]
  - FEAR [None]
  - INJURY [None]
  - ANXIETY [None]
  - PAIN [None]
  - EMOTIONAL DISTRESS [None]
  - DEATH [None]
  - MULTI-ORGAN FAILURE [None]
  - STRESS [None]
  - UNEVALUABLE EVENT [None]
